FAERS Safety Report 23060659 (Version 2)
Quarter: 2023Q4

REPORT INFORMATION
  Report Type: Spontaneous
  Country: CA (occurrence: CA)
  Receive Date: 20231012
  Receipt Date: 20231208
  Transmission Date: 20240110
  Serious: Yes (Hospitalization, Other)
  Sender: FDA-Public Use
  Company Number: CA-PFIZER INC-PV202300131303

PATIENT
  Age: 14 Year
  Sex: Male

DRUGS (2)
  1. RAPAMUNE [Suspect]
     Active Substance: SIROLIMUS
     Indication: Evans syndrome
     Dosage: 3 MG, (SIROLIMUS 1 MG TABLET-TAKE 2 TABS EVERY MORNING (2 MG) AND 1 TAB EVERY EVENING (I MG)
     Route: 048
     Dates: start: 20230821
  2. RAPAMUNE [Suspect]
     Active Substance: SIROLIMUS
     Dosage: 3 MG AM AND 2 MG PM DAILY
     Route: 048

REACTIONS (2)
  - Haemorrhage [Unknown]
  - Off label use [Unknown]

NARRATIVE: CASE EVENT DATE: 20230101
